FAERS Safety Report 15644301 (Version 1)
Quarter: 2018Q4

REPORT INFORMATION
  Report Type: Other
  Country: US (occurrence: US)
  Receive Date: 20181121
  Receipt Date: 20181121
  Transmission Date: 20190205
  Serious: No
  Sender: FDA-Public Use
  Company Number: US-LEADIANT BIOSCIENCES INC-2018STPI000252

PATIENT
  Sex: Male

DRUGS (7)
  1. VIRTRATE K [Concomitant]
  2. CYSTARAN [Suspect]
     Active Substance: CYSTEAMINE HYDROCHLORIDE
     Indication: CYSTINOSIS
     Dosage: 1 GTT, 6X A DAY
     Route: 047
     Dates: start: 20160513
  3. PENICILLIN VK [Concomitant]
     Active Substance: PENICILLIN V POTASSIUM
  4. RANITIDINE. [Concomitant]
     Active Substance: RANITIDINE
  5. NYSTATIN. [Concomitant]
     Active Substance: NYSTATIN
  6. PROCYSBI [Concomitant]
     Active Substance: CYSTEAMINE BITARTRATE
  7. VITAMIN D3 [Concomitant]
     Active Substance: CHOLECALCIFEROL

REACTIONS (2)
  - Sneezing [Not Recovered/Not Resolved]
  - Lacrimation increased [Not Recovered/Not Resolved]
